FAERS Safety Report 19938837 (Version 4)
Quarter: 2022Q3

REPORT INFORMATION
  Report Type: Spontaneous
  Country: JP (occurrence: JP)
  Receive Date: 20211011
  Receipt Date: 20220712
  Transmission Date: 20221026
  Serious: Yes (Hospitalization, Other)
  Sender: FDA-Public Use
  Company Number: JP-NOVARTISPH-NVSJ2021JP016522

PATIENT
  Age: 53 Year
  Sex: Female
  Weight: 38 kg

DRUGS (15)
  1. NEORAL [Suspect]
     Active Substance: CYCLOSPORINE
     Indication: Dermatomyositis
     Dosage: 60 MG, BID
     Route: 048
     Dates: start: 20200117, end: 20200213
  2. NEORAL [Suspect]
     Active Substance: CYCLOSPORINE
     Dosage: 60 MG, BID
     Route: 048
     Dates: start: 20200217, end: 20200223
  3. NEORAL [Suspect]
     Active Substance: CYCLOSPORINE
     Dosage: 75 MG, BID
     Route: 048
     Dates: start: 20200224, end: 20200227
  4. NEORAL [Suspect]
     Active Substance: CYCLOSPORINE
     Dosage: 85 MG, BID
     Route: 048
     Dates: start: 20200228, end: 20200305
  5. NEORAL [Suspect]
     Active Substance: CYCLOSPORINE
     Dosage: 75 MG, BID
     Route: 048
     Dates: start: 20200306, end: 20200309
  6. NEORAL [Suspect]
     Active Substance: CYCLOSPORINE
     Dosage: 50 MG, BID
     Route: 048
     Dates: start: 20200310, end: 20200323
  7. PREDNISOLONE [Concomitant]
     Active Substance: PREDNISOLONE
     Indication: Dermatomyositis
     Dosage: 35 MG
     Route: 048
     Dates: start: 20200120
  8. PREDNISOLONE [Concomitant]
     Active Substance: PREDNISOLONE
     Dosage: 9 MG
     Route: 048
  9. CYCLOPHOSPHAMIDE [Concomitant]
     Active Substance: CYCLOPHOSPHAMIDE
     Indication: Dermatomyositis
     Dosage: 400 MG
     Route: 041
     Dates: start: 20200120, end: 20200120
  10. CYCLOPHOSPHAMIDE [Concomitant]
     Active Substance: CYCLOPHOSPHAMIDE
     Dosage: 400 MG
     Route: 041
     Dates: start: 20200227, end: 20200227
  11. CYCLOPHOSPHAMIDE [Concomitant]
     Active Substance: CYCLOPHOSPHAMIDE
     Dosage: 320 MG
     Route: 041
     Dates: start: 20200312, end: 20200312
  12. METHYLPREDNISOLONE [Concomitant]
     Active Substance: METHYLPREDNISOLONE
     Indication: Product used for unknown indication
     Dosage: UNK
     Route: 048
  13. METHYLPREDNISOLONE SODIUM SUCCINATE [Concomitant]
     Active Substance: METHYLPREDNISOLONE SODIUM SUCCINATE
     Indication: Product used for unknown indication
     Dosage: UNK
     Route: 065
  14. GLUFOSFAMIDE [Concomitant]
     Active Substance: GLUFOSFAMIDE
     Indication: Product used for unknown indication
     Dosage: UNK
     Route: 065
  15. LANSOPRAZOLE [Concomitant]
     Active Substance: LANSOPRAZOLE
     Indication: Prophylaxis against gastrointestinal ulcer
     Dosage: 15 MG/DAY
     Route: 048
     Dates: end: 20200130

REACTIONS (8)
  - Thrombotic microangiopathy [Recovering/Resolving]
  - Platelet count decreased [Recovering/Resolving]
  - Haemolytic anaemia [Recovering/Resolving]
  - Jaundice [Unknown]
  - Haptoglobin decreased [Unknown]
  - Gastric ulcer haemorrhage [Recovered/Resolved]
  - Duodenal ulcer haemorrhage [Recovered/Resolved]
  - Product use in unapproved indication [Unknown]

NARRATIVE: CASE EVENT DATE: 20200117
